FAERS Safety Report 10384343 (Version 3)
Quarter: 2016Q1

REPORT INFORMATION
  Report Type: Spontaneous
  Country: US (occurrence: US)
  Receive Date: 20140814
  Receipt Date: 20160330
  Transmission Date: 20160525
  Serious: Yes (Hospitalization, Other)
  Sender: FDA-Public Use
  Company Number: US-JNJCP-30000235050

PATIENT
  Age: 54 Year
  Sex: Female
  Weight: 109 kg

DRUGS (2)
  1. SHOWER TO SHOWER TALCUM PRODUCT [Suspect]
     Active Substance: TALC
     Route: 061
     Dates: start: 195701, end: 201111
  2. JOHNSONS BABY POWDER [Suspect]
     Active Substance: TALC
     Route: 061
     Dates: start: 195701, end: 201111

REACTIONS (1)
  - Ovarian cancer stage I [Unknown]

NARRATIVE: CASE EVENT DATE: 20111110
